FAERS Safety Report 9464548 (Version 1)
Quarter: 2013Q3

REPORT INFORMATION
  Report Type: Spontaneous
  Country: US (occurrence: US)
  Receive Date: 20130819
  Receipt Date: 20130819
  Transmission Date: 20140515
  Serious: Yes (Other)
  Sender: FDA-Public Use
  Company Number: US-JNJFOC-20130806156

PATIENT
  Age: 46 Year
  Sex: Female
  Weight: 98.43 kg

DRUGS (3)
  1. NUCYNTA [Suspect]
     Indication: ABDOMINAL PAIN
     Dosage: 50 MG, THREE TIMES A DAY AS NEEDED
     Route: 048
     Dates: start: 2011
  2. PRILOSEC [Concomitant]
     Route: 065
  3. PRILOSEC [Concomitant]
     Route: 065

REACTIONS (5)
  - Gastrooesophageal reflux disease [Unknown]
  - Ligament injury [Unknown]
  - Depression [Not Recovered/Not Resolved]
  - Weight decreased [Not Recovered/Not Resolved]
  - Loss of employment [Unknown]
